FAERS Safety Report 10062840 (Version 1)
Quarter: 2014Q2

REPORT INFORMATION
  Report Type: Spontaneous
  Country: TR (occurrence: TR)
  Receive Date: 20140407
  Receipt Date: 20140407
  Transmission Date: 20141212
  Serious: Yes (Hospitalization, Other)
  Sender: FDA-Public Use
  Company Number: TR-BAYER-2014-051499

PATIENT
  Age: 52 Year
  Sex: Female

DRUGS (2)
  1. ULTRAVIST [Suspect]
     Indication: ARTERIOGRAM CORONARY
     Route: 042
  2. ULTRAVIST [Suspect]
     Indication: ARTERIOGRAM CORONARY
     Route: 042

REACTIONS (3)
  - Acute generalised exanthematous pustulosis [None]
  - Acute generalised exanthematous pustulosis [None]
  - Wrong drug administered [None]
